APPROVED DRUG PRODUCT: PROGESTERONE
Active Ingredient: PROGESTERONE
Strength: 100MG
Dosage Form/Route: INSERT;VAGINAL
Application: A218391 | Product #001 | TE Code: AB
Applicant: XIROMED PHARMA ESPANA SL
Approved: Sep 19, 2025 | RLD: No | RS: No | Type: RX

EXCLUSIVITY:
Code: CGT | Date: Mar 22, 2026